FAERS Safety Report 12801427 (Version 1)
Quarter: 2016Q4

REPORT INFORMATION
  Report Type: Other
  Country: CA (occurrence: CA)
  Receive Date: 20161003
  Receipt Date: 20161003
  Transmission Date: 20170207
  Serious: Yes (Disabling)
  Sender: FDA-Public Use
  Company Number: CA-APOTEX-2016AP012486

PATIENT
  Age: 46 Year
  Sex: Female

DRUGS (2)
  1. CIPRALEX [Concomitant]
     Active Substance: ESCITALOPRAM OXALATE
     Indication: PRODUCT USED FOR UNKNOWN INDICATION
     Route: 065
  2. APO-QUETIAPINE [Suspect]
     Active Substance: QUETIAPINE
     Indication: DEPRESSION
     Dosage: 50 MG, QD
     Route: 048

REACTIONS (2)
  - Tachycardia [Recovered/Resolved]
  - Dyspnoea [Recovered/Resolved]
